FAERS Safety Report 5421614-6 (Version None)
Quarter: 2007Q3

REPORT INFORMATION
  Report Type: 
  Country: None (occurrence: None)
  Receive Date: 20070821
  Receipt Date: 20070809
  Transmission Date: 20080115
  Serious: Yes (Other)
  Sender: FDA-Public Use
  Company Number: FR-PFIZER INC-2007057209

PATIENT
  Sex: Female

DRUGS (2)
  1. GENOTONORM [Suspect]
     Indication: HYPOPITUITARISM
     Dosage: FREQ:9.60 MG/WEEK
  2. DECAPEPTYL [Concomitant]
     Route: 048

REACTIONS (1)
  - MEDULLOBLASTOMA RECURRENT [None]
